FAERS Safety Report 4520568-4 (Version None)
Quarter: 2004Q4

REPORT INFORMATION
  Report Type: 
  Country: None (occurrence: None)
  Receive Date: 20041203
  Receipt Date: 20041119
  Transmission Date: 20050328
  Serious: Yes (Death, Hospitalization, Other)
  Sender: FDA-Public Use
  Company Number: 2004097628

PATIENT
  Age: 93 Year
  Sex: Female
  Weight: 45.3597 kg

DRUGS (3)
  1. BEXTRA [Suspect]
     Indication: ARTHRITIS
     Dosage: 10 MG (10 MG, 1 IN 1 D), ORAL
     Route: 048
     Dates: start: 20041018, end: 20041020
  2. ANTIHYPERTENSIVES (ANTIHYPERTENSIVES) [Concomitant]
  3. SERTRALINE HCL [Concomitant]

REACTIONS (4)
  - ANEURYSM [None]
  - FEELING ABNORMAL [None]
  - HAEMORRHAGIC STROKE [None]
  - PHARMACEUTICAL PRODUCT COMPLAINT [None]
